FAERS Safety Report 8372981-5 (Version None)
Quarter: 2012Q2

REPORT INFORMATION
  Report Type: 
  Country: None (occurrence: None)
  Receive Date: 20120521
  Receipt Date: 20120216
  Transmission Date: 20120825
  Serious: No
  Sender: FDA-Public Use
  Company Number: US-ASTRAZENECA-2012SE13586

PATIENT
  Sex: Female

DRUGS (2)
  1. PRILOSEC OTC [Suspect]
     Route: 048
     Dates: start: 20120131, end: 20120216
  2. PRILOSEC OTC [Suspect]
     Route: 048
     Dates: start: 20111215, end: 20120130

REACTIONS (2)
  - EYE HAEMORRHAGE [None]
  - EYE INJURY [None]
